FAERS Safety Report 18914592 (Version 1)
Quarter: 2021Q1

REPORT INFORMATION
  Report Type: Report from Study
  Country: None (occurrence: US)
  Receive Date: 20210219
  Receipt Date: 20210219
  Transmission Date: 20210420
  Serious: Yes (Death, Hospitalization)
  Sender: FDA-Public Use
  Company Number: US-ABBVIE-21K-163-3780608-00

PATIENT
  Sex: Female
  Weight: 45.4 kg

DRUGS (1)
  1. CREON [Suspect]
     Active Substance: PANCRELIPASE AMYLASE\PANCRELIPASE LIPASE\PANCRELIPASE PROTEASE
     Indication: PANCREATIC CARCINOMA
     Dosage: 1 TO 2 CAPSULES PER MEALS; 6 TO 10 CAPSULES PER DAY
     Route: 048
     Dates: start: 201909

REACTIONS (4)
  - Intestinal obstruction [Not Recovered/Not Resolved]
  - Biliary obstruction [Not Recovered/Not Resolved]
  - Pancreatic carcinoma metastatic [Fatal]
  - Duodenal stenosis [Fatal]

NARRATIVE: CASE EVENT DATE: 2020
